FAERS Safety Report 16253677 (Version 2)
Quarter: 2019Q3

REPORT INFORMATION
  Report Type: Spontaneous
  Country: US (occurrence: US)
  Receive Date: 20190430
  Receipt Date: 20190801
  Transmission Date: 20191004
  Serious: Yes (Other)
  Sender: FDA-Public Use
  Company Number: US-TEVA-2019-US-1043096

PATIENT
  Sex: Female

DRUGS (8)
  1. ACICLOVIR [Concomitant]
     Active Substance: ACYCLOVIR
  2. ACICLOVIR [Suspect]
     Active Substance: ACYCLOVIR
     Indication: PROPHYLAXIS
  3. ACICLOVIR [Suspect]
     Active Substance: ACYCLOVIR
     Indication: PLASMA CELL MYELOMA
     Dates: start: 2012
  4. LEVOTHYROXINE. [Concomitant]
     Active Substance: LEVOTHYROXINE
     Indication: HYPOTHYROIDISM
     Dosage: DOSE:IT^S VERY LOW MAYBE 10. START DATE:LONG TIME AGO.
  5. CARTIA [Concomitant]
  6. LYRICA [Suspect]
     Active Substance: PREGABALIN
     Indication: HERPES ZOSTER
     Dosage: 300 MILLIGRAM DAILY;
     Dates: start: 2012
  7. LYRICA [Suspect]
     Active Substance: PREGABALIN
     Indication: NERVE INJURY
  8. LIPITOR [Concomitant]
     Active Substance: ATORVASTATIN CALCIUM
     Indication: BLOOD CHOLESTEROL INCREASED
     Dosage: START DATE: REPORTER STATED, ^A LONG TIME AGO TOO.^DOSE: REPORTER STATED, ^I DON^T KNOW WHAT IT IS.^

REACTIONS (2)
  - Product use in unapproved indication [Unknown]
  - Lymphoma [Recovered/Resolved]

NARRATIVE: CASE EVENT DATE: 2012
